FAERS Safety Report 13309303 (Version 1)
Quarter: 2017Q1

REPORT INFORMATION
  Report Type: Spontaneous
  Country: GB (occurrence: GB)
  Receive Date: 20170309
  Receipt Date: 20170309
  Transmission Date: 20170428
  Serious: Yes (Other)
  Sender: FDA-Public Use
  Company Number: GB-PFIZER INC-2017093928

PATIENT
  Age: 84 Year
  Sex: Female
  Weight: 70 kg

DRUGS (17)
  1. AMOXICILLIN. [Concomitant]
     Active Substance: AMOXICILLIN
     Dosage: 1 DF, TAKEN THREE TIMES DAILY
     Dates: start: 20170214
  2. LAXIDO [Concomitant]
     Active Substance: POLYETHYLENE GLYCOL 3350\POTASSIUM CHLORIDE\SODIUM BICARBONATE\SODIUM CHLORIDE
     Dosage: ONE TO TWO TAKEN PER DAY
     Dates: start: 20160908
  3. HYDROCORTISONE. [Concomitant]
     Active Substance: HYDROCORTISONE
     Dosage: 1 DF, TAKEN TWICE DAILY
     Dates: start: 20170120, end: 20170127
  4. LEVOTHYROXINE. [Concomitant]
     Active Substance: LEVOTHYROXINE
     Indication: HYPOTHYROIDISM
     Dosage: 75 UG, TAKEN ONCE DAILY
     Dates: start: 20160908
  5. ALENDRONIC ACID [Concomitant]
     Active Substance: ALENDRONIC ACID
     Dosage: 1 DF, WEEKLY WITH WATER ON A FRIDAY MORNING
     Dates: start: 20160908
  6. LANSOPRAZOLE. [Concomitant]
     Active Substance: LANSOPRAZOLE
     Indication: DYSPEPSIA
     Dosage: ONE TO TWO TAKEN DAILY
     Dates: start: 20160908
  7. LIPITOR [Concomitant]
     Active Substance: ATORVASTATIN CALCIUM
     Dosage: 1 DF, TAKEN ONCE DAILY AT NIGHT
     Dates: start: 20160908
  8. CALCICHEW D3 [Concomitant]
     Active Substance: CALCIUM\CHOLECALCIFEROL
     Dosage: 1 DF, TAKEN TWICE DAILY
     Dates: start: 20160908
  9. PARACETAMOL [Concomitant]
     Active Substance: ACETAMINOPHEN
     Indication: PAIN
     Dosage: ONE OR TWO TAKEN FOUR TIMES DAILY
     Dates: start: 20160908
  10. AMITRIPTYLINE HYDROCHLORIDE. [Concomitant]
     Active Substance: AMITRIPTYLINE HYDROCHLORIDE
     Dosage: ONE OR TWO TAKEN AT NIGHT
     Dates: start: 20160908
  11. DOXYCYCLINE MONOHYDRATE [Suspect]
     Active Substance: DOXYCYCLINE
     Dosage: UNK
     Dates: start: 20170214
  12. CO-AMOXICLAV /00756801/ [Concomitant]
     Active Substance: AMOXICILLIN\CLAVULANIC ACID
     Dosage: 1 DF, TAKEN THREE TIMES DAILY
     Dates: start: 20170120, end: 20170127
  13. AMOXIL [Concomitant]
     Active Substance: AMOXICILLIN
     Dosage: 1 DF, TAKEN THREE TIMES DAILY
     Dates: start: 20170111, end: 20170118
  14. COCODAMOL [Concomitant]
     Active Substance: ACETAMINOPHEN\CODEINE PHOSPHATE
     Dosage: ONE OR TWO TAKEN 4 TIMES DAILY
     Dates: start: 20160908
  15. ACIDEX [Concomitant]
     Active Substance: CALCIUM CARBONATE\SODIUM ALGINATE\SODIUM BICARBONATE
     Dosage: 10 ML, TAKEN AFTER MEALS AND AT BEDTIME
     Dates: start: 20170106
  16. SALBUTAMOL [Concomitant]
     Active Substance: ALBUTEROL
     Dosage: 2 DF, TAKEN FOUR TIMES DAILY
     Dates: start: 20150828
  17. ZOPICLONE [Concomitant]
     Active Substance: ZOPICLONE
     Dosage: 1 DF, TAKEN ONCE DAILY AT NIGHT
     Dates: start: 20161025

REACTIONS (2)
  - Dyspepsia [Recovered/Resolved]
  - Condition aggravated [Recovered/Resolved]

NARRATIVE: CASE EVENT DATE: 20170217
